FAERS Safety Report 8451302-3 (Version None)
Quarter: 2012Q2

REPORT INFORMATION
  Report Type: 
  Country: None (occurrence: None)
  Receive Date: 20120620
  Receipt Date: 20120302
  Transmission Date: 20120825
  Serious: No
  Sender: FDA-Public Use
  Company Number: US-VERTEX PHARMACEUTICALS INC.-AE-2012-002476

PATIENT
  Sex: Male
  Weight: 81.72 kg

DRUGS (8)
  1. OMEPRAZOLE [Concomitant]
     Indication: GASTROOESOPHAGEAL REFLUX DISEASE
  2. INCIVEK [Suspect]
     Indication: HEPATITIS C
     Route: 048
     Dates: start: 20120210
  3. PEGASYS [Concomitant]
     Indication: HEPATITIS C
     Dates: start: 20120210
  4. FINASTERIDE [Concomitant]
     Indication: PROSTATOMEGALY
  5. LEVOTHYROXINE SODIUM [Concomitant]
     Indication: THYROID DISORDER
  6. FLONASE [Concomitant]
     Indication: HYPERSENSITIVITY
     Route: 045
  7. RIBAVIRIN [Concomitant]
     Indication: HEPATITIS C
     Dates: start: 20120210
  8. CITALOPRAM [Concomitant]
     Indication: ANTIDEPRESSANT THERAPY

REACTIONS (5)
  - DEHYDRATION [None]
  - THIRST [None]
  - PAROSMIA [None]
  - ABDOMINAL DISTENSION [None]
  - DYSGEUSIA [None]
